FAERS Safety Report 10875294 (Version 1)
Quarter: 2015Q1

REPORT INFORMATION
  Report Type: Spontaneous
  Country: US (occurrence: US)
  Receive Date: 20150227
  Receipt Date: 20150227
  Transmission Date: 20150721
  Serious: No
  Sender: FDA-Public Use
  Company Number: US-BRISTOL-MYERS SQUIBB COMPANY-BMS-2015-007877

PATIENT
  Sex: Female
  Weight: 64.82 kg

DRUGS (1)
  1. KENALOG-40 [Suspect]
     Active Substance: TRIAMCINOLONE ACETONIDE
     Indication: DERMATITIS CONTACT
     Dosage: 40 MG, UNK
     Route: 030
     Dates: start: 20120705

REACTIONS (3)
  - Maternal exposure during pregnancy [Unknown]
  - Injection site reaction [Unknown]
  - Injection site necrosis [Unknown]
